FAERS Safety Report 13578968 (Version 1)
Quarter: 2017Q2

REPORT INFORMATION
  Report Type: Spontaneous
  Country: US (occurrence: US)
  Receive Date: 20170524
  Receipt Date: 20170524
  Transmission Date: 20170830
  Serious: No
  Sender: FDA-Public Use
  Company Number: US-JAZZ-2017-US-005648

PATIENT
  Sex: Female

DRUGS (41)
  1. NORCO [Concomitant]
     Active Substance: ACETAMINOPHEN\HYDROCODONE BITARTRATE
  2. CLARITIN [Concomitant]
     Active Substance: LORATADINE
  3. MAGNESIUM CARBONATE [Concomitant]
     Active Substance: MAGNESIUM CARBONATE
  4. XYREM [Suspect]
     Active Substance: SODIUM OXYBATE
     Dosage: DOSE ADJUSTMENT
     Route: 048
     Dates: start: 200509, end: 201503
  5. ESTRACE [Concomitant]
     Active Substance: ESTRADIOL
  6. NASACORT [Concomitant]
     Active Substance: TRIAMCINOLONE ACETONIDE
  7. KETOCONAZOLE. [Concomitant]
     Active Substance: KETOCONAZOLE
  8. XYREM [Suspect]
     Active Substance: SODIUM OXYBATE
     Dosage: 5G, QD
     Route: 048
     Dates: start: 201505
  9. BENZONATATE. [Concomitant]
     Active Substance: BENZONATATE
  10. GUAIFENESIN. [Concomitant]
     Active Substance: GUAIFENESIN
  11. ADDERALL [Concomitant]
     Active Substance: AMPHETAMINE ASPARTATE\AMPHETAMINE SULFATE\DEXTROAMPHETAMINE SACCHARATE\DEXTROAMPHETAMINE SULFATE
  12. BENAZEPRIL HCL [Concomitant]
     Active Substance: BENAZEPRIL HYDROCHLORIDE
  13. HAIR, SKIN + NAILS                 /00772301/ [Concomitant]
  14. ZOLOFT [Concomitant]
     Active Substance: SERTRALINE HYDROCHLORIDE
  15. DESOXIMETASONE. [Concomitant]
     Active Substance: DESOXIMETASONE
  16. KRILL OIL [Concomitant]
     Active Substance: DIETARY SUPPLEMENT
  17. METHOCARBAMOL. [Concomitant]
     Active Substance: METHOCARBAMOL
  18. TYLENOL WITH CODEINE [Concomitant]
     Active Substance: ACETAMINOPHEN\CODEINE PHOSPHATE
  19. LASIX [Concomitant]
     Active Substance: FUROSEMIDE
  20. MOBIC [Concomitant]
     Active Substance: MELOXICAM
  21. RHINOCORT                          /00212602/ [Concomitant]
  22. VYVANSE [Concomitant]
     Active Substance: LISDEXAMFETAMINE DIMESYLATE
  23. XYREM [Suspect]
     Active Substance: SODIUM OXYBATE
     Indication: NARCOLEPSY
     Dosage: 2.25G, BID
     Route: 048
     Dates: start: 200308, end: 2003
  24. DURAHIST [Concomitant]
  25. FELDENE [Concomitant]
     Active Substance: PIROXICAM
  26. TRAMADOL HCL [Concomitant]
     Active Substance: TRAMADOL HYDROCHLORIDE
  27. LOTREL                             /01388302/ [Concomitant]
     Active Substance: LOTEPREDNOL ETABONATE
  28. BACLOFEN. [Concomitant]
     Active Substance: BACLOFEN
  29. FISH OIL [Concomitant]
     Active Substance: FISH OIL
  30. GLUCOSAMINE COMPLEX                /01555401/ [Concomitant]
  31. COREG [Concomitant]
     Active Substance: CARVEDILOL
  32. CALCIUM +D                         /07511201/ [Concomitant]
  33. FISH OIL CONCENTRATE [Concomitant]
     Active Substance: FISH OIL
  34. NAPROSYN [Concomitant]
     Active Substance: NAPROXEN
  35. FLONASE                            /00908302/ [Concomitant]
     Active Substance: MOMETASONE FUROATE
  36. MOTRIN [Concomitant]
     Active Substance: IBUPROFEN
  37. XYREM [Suspect]
     Active Substance: SODIUM OXYBATE
     Dosage: 3G, QD
     Route: 048
     Dates: start: 201505
  38. PREDNISONE. [Concomitant]
     Active Substance: PREDNISONE
  39. NUVIGIL [Concomitant]
     Active Substance: ARMODAFINIL
  40. RESTASIS [Concomitant]
     Active Substance: CYCLOSPORINE
  41. ZYRTEC [Concomitant]
     Active Substance: CETIRIZINE HYDROCHLORIDE

REACTIONS (1)
  - Dry eye [Not Recovered/Not Resolved]
